FAERS Safety Report 5632008-2 (Version None)
Quarter: 2008Q1

REPORT INFORMATION
  Report Type: 
  Country: None (occurrence: None)
  Receive Date: 20080220
  Receipt Date: 20080218
  Transmission Date: 20080703
  Serious: Yes (Life-Threatening, Other)
  Sender: FDA-Public Use
  Company Number: US-ASTRAZENECA-2008UW03248

PATIENT
  Sex: Female

DRUGS (1)
  1. TOPROL-XL [Suspect]

REACTIONS (3)
  - ANEURYSM [None]
  - CARDIAC DISORDER [None]
  - LUNG DISORDER [None]
